FAERS Safety Report 20703642 (Version 2)
Quarter: 2022Q3

REPORT INFORMATION
  Report Type: Spontaneous
  Country: CA (occurrence: CA)
  Receive Date: 20220413
  Receipt Date: 20220913
  Transmission Date: 20221027
  Serious: Yes (Hospitalization, Other)
  Sender: FDA-Public Use
  Company Number: CA-SAMSUNG BIOEPIS-SB-2022-08367

PATIENT
  Age: 77 Year
  Sex: Female
  Weight: 78 kg

DRUGS (1)
  1. INFLIXIMAB [Suspect]
     Active Substance: INFLIXIMAB
     Indication: Crohn^s disease
     Route: 042

REACTIONS (8)
  - Dehydration [Unknown]
  - Fatigue [Unknown]
  - Gastrointestinal pain [Unknown]
  - Hypotension [Unknown]
  - Throat cancer [Unknown]
  - Wound [Unknown]
  - Nausea [Unknown]
  - Vomiting [Unknown]
